FAERS Safety Report 24712763 (Version 1)
Quarter: 2024Q4

REPORT INFORMATION
  Report Type: Spontaneous
  Country: CN (occurrence: CN)
  Receive Date: 20241209
  Receipt Date: 20241209
  Transmission Date: 20250114
  Serious: Yes (Other)
  Sender: BAXTER
  Company Number: None

PATIENT
  Age: 67 Year
  Sex: Male
  Weight: 50 kg

DRUGS (13)
  1. CYCLOPHOSPHAMIDE [Suspect]
     Active Substance: CYCLOPHOSPHAMIDE
     Indication: High-grade B-cell lymphoma
     Dosage: 1 G (750 MG/M2), ONE TIME IN ONE DAY, DILUTED WITH 50 ML OF 0.9% SODIUM CHLORIDE; START TIME: 10:00
     Route: 042
     Dates: start: 20241106, end: 20241106
  2. CYCLOPHOSPHAMIDE [Suspect]
     Active Substance: CYCLOPHOSPHAMIDE
     Indication: Chemotherapy
  3. CYCLOPHOSPHAMIDE [Suspect]
     Active Substance: CYCLOPHOSPHAMIDE
     Indication: Neoplasm
  4. SODIUM CHLORIDE [Suspect]
     Active Substance: SODIUM CHLORIDE
     Indication: Medication dilution
     Dosage: 50 ML (0.9%), ONE TIME IN ONE DAY, USED TO DILUTE 1 G (750 MG/M2) OF CYCLOPHOSPHAMIDE; START TIME: 1
     Route: 042
     Dates: start: 20241106, end: 20241106
  5. DOXORUBICIN [Suspect]
     Active Substance: DOXORUBICIN
     Indication: High-grade B-cell lymphoma
     Dosage: UNK
     Route: 065
     Dates: start: 20241106, end: 20241106
  6. DOXORUBICIN [Suspect]
     Active Substance: DOXORUBICIN
     Indication: Chemotherapy
  7. DOXORUBICIN [Suspect]
     Active Substance: DOXORUBICIN
     Indication: Neoplasm
  8. VINCRISTINE [Suspect]
     Active Substance: VINCRISTINE
     Indication: High-grade B-cell lymphoma
     Dosage: UNK
     Route: 065
     Dates: start: 20241106, end: 20241106
  9. VINCRISTINE [Suspect]
     Active Substance: VINCRISTINE
     Indication: Chemotherapy
  10. VINCRISTINE [Suspect]
     Active Substance: VINCRISTINE
     Indication: Neoplasm
  11. PREDNISONE [Suspect]
     Active Substance: PREDNISONE
     Indication: High-grade B-cell lymphoma
     Dosage: UNK
     Route: 065
     Dates: start: 20241106, end: 20241106
  12. PREDNISONE [Suspect]
     Active Substance: PREDNISONE
     Indication: Chemotherapy
  13. PREDNISONE [Suspect]
     Active Substance: PREDNISONE
     Indication: Neoplasm

REACTIONS (1)
  - Myelosuppression [Recovering/Resolving]

NARRATIVE: CASE EVENT DATE: 20241106
